FAERS Safety Report 9753925 (Version 5)
Quarter: 2014Q1

REPORT INFORMATION
  Report Type: Spontaneous
  Country: US (occurrence: US)
  Receive Date: 20131213
  Receipt Date: 20140221
  Transmission Date: 20141002
  Serious: Yes (Hospitalization, Other)
  Sender: FDA-Public Use
  Company Number: US-009507513-1202USA00860

PATIENT
  Sex: Female
  Weight: 68.27 kg

DRUGS (6)
  1. FOSAMAX [Suspect]
     Indication: OSTEOPOROSIS
     Dosage: 70 MG, UNK
     Route: 048
     Dates: start: 200104, end: 200504
  2. FOSAMAX PLUS D [Suspect]
     Indication: OSTEOPOROSIS
     Dosage: 70 MG, UNK
     Route: 048
     Dates: start: 200504, end: 200802
  3. ALENDRONATE SODIUM [Suspect]
     Indication: OSTEOPOROSIS
     Dosage: 70 MG, UNK
     Route: 048
     Dates: start: 200802, end: 201009
  4. CALCIUM (UNSPECIFIED) (+) VITAMIN D (UNSPECIFIED) [Concomitant]
     Dosage: 600MG/400IU
     Route: 048
     Dates: start: 1998
  5. VITAMINS (UNSPECIFIED) [Concomitant]
     Dosage: UNK, QD
     Route: 048
     Dates: start: 1998
  6. VITAMIN D (UNSPECIFIED) [Concomitant]
     Dosage: 1000 IU, UNK
     Dates: start: 1998

REACTIONS (38)
  - Femur fracture [Unknown]
  - Intramedullary rod insertion [Unknown]
  - Tibia fracture [Unknown]
  - Femur fracture [Unknown]
  - Femur fracture [Recovered/Resolved]
  - Essential hypertension [Unknown]
  - Hypercholesterolaemia [Unknown]
  - Varicose vein operation [Unknown]
  - Intervertebral disc degeneration [Unknown]
  - Spinal osteoarthritis [Unknown]
  - Osteoarthritis [Unknown]
  - Bone cyst [Unknown]
  - Osteoarthritis [Unknown]
  - Enostosis [Unknown]
  - Exostosis [Unknown]
  - Spinal compression fracture [Unknown]
  - Spinal osteoarthritis [Unknown]
  - Arthropathy [Unknown]
  - Iliotibial band syndrome [Unknown]
  - Oropharyngeal pain [Unknown]
  - Cough [Unknown]
  - Spinal osteoarthritis [Unknown]
  - Dyspnoea [Unknown]
  - Adenotonsillectomy [Unknown]
  - Cough [Unknown]
  - Peripheral coldness [Unknown]
  - Asthenia [Unknown]
  - Hyponatraemia [Unknown]
  - Aortic aneurysm [Unknown]
  - Aortic stenosis [Unknown]
  - Myositis [Unknown]
  - Venous insufficiency [Unknown]
  - Chronic obstructive pulmonary disease [Unknown]
  - Dyslipidaemia [Unknown]
  - Back pain [Not Recovered/Not Resolved]
  - Constipation [Unknown]
  - Abdominal pain [Unknown]
  - Pain in extremity [Unknown]
